FAERS Safety Report 6642063-9 (Version None)
Quarter: 2010Q1

REPORT INFORMATION
  Report Type: 
  Country: None (occurrence: None)
  Receive Date: 20100319
  Receipt Date: 20100309
  Transmission Date: 20100710
  Serious: Yes (Hospitalization, Other)
  Sender: FDA-Public Use
  Company Number: PHEH2010US02627

PATIENT
  Sex: Female

DRUGS (5)
  1. EXJADE [Suspect]
     Indication: IRON OVERLOAD
     Dosage: 1500 MG, QD
     Route: 048
     Dates: start: 20081120, end: 20100219
  2. EXJADE [Suspect]
     Dosage: 1500 MG, QD
  3. FOLIC ACID [Concomitant]
     Dosage: UNK MG, UNK
  4. HYDREA [Concomitant]
     Dosage: 1000 MG, QD
     Dates: start: 20000101
  5. MORPHINE SULFATE [Concomitant]
     Dosage: UNK
     Dates: start: 20020101

REACTIONS (4)
  - APPENDICECTOMY [None]
  - INFECTION [None]
  - SICKLE CELL ANAEMIA WITH CRISIS [None]
  - TREATMENT NONCOMPLIANCE [None]
